FAERS Safety Report 8601564-4 (Version None)
Quarter: 2012Q3

REPORT INFORMATION
  Report Type: 
  Country: None (occurrence: None)
  Receive Date: 20120817
  Receipt Date: 20111129
  Transmission Date: 20120928
  Serious: No
  Sender: FDA-Public Use
  Company Number: US-BRISTOL-MYERS SQUIBB COMPANY-16258329

PATIENT
  Age: 26 Year
  Sex: Female

DRUGS (3)
  1. SPRYCEL [Suspect]
     Indication: CHRONIC MYELOID LEUKAEMIA
  2. HYDROXYUREA [Concomitant]
  3. OXYCODONE HCL [Concomitant]

REACTIONS (2)
  - PAIN [None]
  - MUSCULOSKELETAL PAIN [None]
